FAERS Safety Report 7222041-1 (Version None)
Quarter: 2011Q1

REPORT INFORMATION
  Report Type: 
  Country: None (occurrence: None)
  Receive Date: 20110112
  Receipt Date: 20101231
  Transmission Date: 20110831
  Serious: Yes (Hospitalization)
  Sender: FDA-Public Use
  Company Number: PHHY2010IT90329

PATIENT
  Sex: Female

DRUGS (3)
  1. ONDANSETRON [Concomitant]
     Dosage: UNK
     Dates: start: 20101227
  2. DEXAMETHASONE [Concomitant]
     Dosage: UNK
     Dates: start: 20101227
  3. CARBOPLATIN [Suspect]
     Indication: OVARIAN CANCER RECURRENT
     Dosage: 600 MG, CICLICALLY
     Route: 042
     Dates: start: 20101227, end: 20101227

REACTIONS (4)
  - LOSS OF CONSCIOUSNESS [None]
  - DYSPNOEA [None]
  - GRAND MAL CONVULSION [None]
  - HYPOTENSION [None]
